FAERS Safety Report 12654207 (Version 1)
Quarter: 2016Q3

REPORT INFORMATION
  Report Type: Spontaneous
  Country: US (occurrence: None)
  Receive Date: 20160815
  Receipt Date: 20160815
  Transmission Date: 20161109
  Serious: No
  Sender: FDA-Public Use
  Company Number: None

PATIENT
  Age: 62 Year
  Sex: Female
  Weight: 86.18 kg

DRUGS (7)
  1. VITAFUSION MELATONIN [Concomitant]
  2. CLONAZEPAM. [Suspect]
     Active Substance: CLONAZEPAM
     Indication: RESTLESS LEGS SYNDROME
  3. BIOTIN [Concomitant]
     Active Substance: BIOTIN
  4. LEVODPA/ CARBIDOPA [Concomitant]
  5. TRAMADOL. [Concomitant]
     Active Substance: TRAMADOL
  6. VITAFUSION MULTIVITS [Concomitant]
  7. TIZANIDINE. [Suspect]
     Active Substance: TIZANIDINE
     Indication: MUSCLE SPASMS
     Route: 048
     Dates: start: 20160808

REACTIONS (2)
  - Amnesia [None]
  - Product use issue [None]

NARRATIVE: CASE EVENT DATE: 20160808
